FAERS Safety Report 4678940-8 (Version None)
Quarter: 2005Q2

REPORT INFORMATION
  Report Type: 
  Country: None (occurrence: None)
  Receive Date: 20050531
  Receipt Date: 20050517
  Transmission Date: 20051028
  Serious: Yes (Hospitalization, Other)
  Sender: FDA-Public Use
  Company Number: 2005076164

PATIENT
  Age: 60 Year
  Sex: Male

DRUGS (4)
  1. GEODON [Suspect]
     Indication: ILL-DEFINED DISORDER
     Dosage: 160 MG(80 MG, 2 IN 1 D)
  2. DEPAKOTE [Suspect]
     Indication: ILL-DEFINED DISORDER
  3. ZYPREXA [Suspect]
     Indication: ILL-DEFINED DISORDER
  4. ALL OTHER THERAPEUTIC PRODUCTS (ALL OTHER THERAPEUTIC PRODUCTS) [Suspect]
     Indication: ILL-DEFINED DISORDER

REACTIONS (1)
  - MYOCARDIAL INFARCTION [None]
